FAERS Safety Report 14215513 (Version 2)
Quarter: 2018Q1

REPORT INFORMATION
  Report Type: Spontaneous
  Country: US (occurrence: US)
  Receive Date: 20171122
  Receipt Date: 20180117
  Transmission Date: 20180508
  Serious: No
  Sender: FDA-Public Use
  Company Number: US-JNJFOC-20171036089

PATIENT
  Sex: Male

DRUGS (1)
  1. ZYTIGA [Suspect]
     Active Substance: ABIRATERONE ACETATE
     Indication: PRODUCT USED FOR UNKNOWN INDICATION
     Route: 048

REACTIONS (7)
  - Psychomotor hyperactivity [Unknown]
  - Restlessness [Unknown]
  - Irritability [Unknown]
  - Asthenia [Unknown]
  - Scrotal disorder [Unknown]
  - Hypersomnia [Unknown]
  - Testicular pain [Unknown]
